FAERS Safety Report 14915695 (Version 1)
Quarter: 2018Q2

REPORT INFORMATION
  Report Type: Spontaneous
  Country: US (occurrence: US)
  Receive Date: 20180518
  Receipt Date: 20180518
  Transmission Date: 20180711
  Serious: Yes (Other)
  Sender: FDA-Public Use
  Company Number: US-SHIRE-US201817926

PATIENT
  Age: 9 Month
  Sex: Male

DRUGS (2)
  1. RITUXIMAB. [Concomitant]
     Active Substance: RITUXIMAB
     Indication: CYTOPENIA
  2. GAMMAGARD LIQUID [Suspect]
     Active Substance: HUMAN IMMUNOGLOBULIN G
     Indication: CYTOPENIA
     Dosage: 1 GM/KG, 1X/DAY
     Route: 042

REACTIONS (3)
  - Anaemia [Unknown]
  - Immune thrombocytopenic purpura [Unknown]
  - Drug ineffective [Unknown]
